FAERS Safety Report 5728704-9 (Version None)
Quarter: 2008Q2

REPORT INFORMATION
  Report Type: 
  Country: None (occurrence: None)
  Receive Date: 20080430
  Receipt Date: 20080417
  Transmission Date: 20081010
  Serious: Yes (Other)
  Sender: FDA-Public Use
  Company Number: 2008JP001750

PATIENT
  Age: 92 Year
  Sex: Female
  Weight: 31 kg

DRUGS (1)
  1. VESICARE [Suspect]
     Indication: HYPERTONIC BLADDER
     Dosage: 5 MG, UID/QD, ORAL
     Route: 048
     Dates: start: 20080308, end: 20080404

REACTIONS (3)
  - BILE DUCT STONE [None]
  - CHOLANGITIS [None]
  - CHOLELITHIASIS [None]
